FAERS Safety Report 5302991-3 (Version None)
Quarter: 2007Q2

REPORT INFORMATION
  Report Type: 
  Country: None (occurrence: None)
  Receive Date: 20070417
  Receipt Date: 20070417
  Transmission Date: 20071010
  Serious: Yes (Other)
  Sender: FDA-Public Use
  Company Number: None

PATIENT
  Age: 61 Year
  Sex: Male
  Weight: 89.8122 kg

DRUGS (1)
  1. LEUKINE [Suspect]
     Indication: NEUTROPENIA
     Dosage: 500 MCG DAILY X 5 SQ
     Route: 058
     Dates: start: 20070404, end: 20070404

REACTIONS (4)
  - ASTHENIA [None]
  - HYPOTENSION [None]
  - NAUSEA [None]
  - TREMOR [None]
